FAERS Safety Report 9355828 (Version 3)
Quarter: 2013Q3

REPORT INFORMATION
  Report Type: Report from Study
  Country: US (occurrence: US)
  Receive Date: 20130619
  Receipt Date: 20130703
  Transmission Date: 20140515
  Serious: Yes (Hospitalization)
  Sender: FDA-Public Use
  Company Number: US-ACTELION-A-NJ2013-84795

PATIENT
  Age: 84 Year
  Sex: Male

DRUGS (3)
  1. VENTAVIS [Suspect]
     Indication: PULMONARY HYPERTENSION
     Dosage: UNK
     Route: 055
  2. VENTAVIS [Suspect]
     Dosage: 5 MCG, 6 TIMES DAILY
     Route: 055
     Dates: start: 2013
  3. COUMADIN [Concomitant]

REACTIONS (3)
  - Colon cancer [Recovering/Resolving]
  - Sigmoidectomy [Recovering/Resolving]
  - Mechanical ventilation [Recovering/Resolving]
